FAERS Safety Report 7512326-3 (Version None)
Quarter: 2011Q2

REPORT INFORMATION
  Report Type: 
  Country: None (occurrence: None)
  Receive Date: 20110531
  Receipt Date: 20110517
  Transmission Date: 20111010
  Serious: Yes (Hospitalization)
  Sender: FDA-Public Use
  Company Number: CA-JNJFOC-20100902775

PATIENT
  Sex: Male
  Weight: 85 kg

DRUGS (6)
  1. OXYCONTIN [Concomitant]
     Route: 048
  2. OXYCODONE AND ACETAMINOPHEN [Concomitant]
     Route: 048
  3. COVERSYL PLUS [Concomitant]
     Dosage: 1 TABLET DAY
     Route: 048
  4. IMOVANE [Concomitant]
     Dosage: UP TO 12 TABLETS A NIGHT
  5. REMICADE [Suspect]
     Indication: CROHN'S DISEASE
     Route: 042
  6. GABAPENTIN [Concomitant]
     Route: 048

REACTIONS (2)
  - DRUG ADMINISTRATION ERROR [None]
  - CONVULSION [None]
